FAERS Safety Report 8450722-0 (Version None)
Quarter: 2012Q2

REPORT INFORMATION
  Report Type: 
  Country: None (occurrence: None)
  Receive Date: 20120620
  Receipt Date: 20120613
  Transmission Date: 20120825
  Serious: Yes (Life-Threatening, Other)
  Sender: FDA-Public Use
  Company Number: JP-PFIZER INC-2012090329

PATIENT
  Age: 76 Year
  Sex: Male
  Weight: 53 kg

DRUGS (2)
  1. ZOSYN [Suspect]
     Indication: ANTIBIOTIC PROPHYLAXIS
     Dosage: 4.5 G, UNK
     Route: 041
     Dates: start: 20120216, end: 20120216
  2. LACTEC [Suspect]
     Dosage: UNK
     Dates: start: 20120216, end: 20120216

REACTIONS (5)
  - COUGH [None]
  - ERYTHEMA [None]
  - OEDEMA [None]
  - ANAPHYLACTIC SHOCK [None]
  - PRURITUS GENERALISED [None]
